FAERS Safety Report 9345784 (Version 5)
Quarter: 2013Q3

REPORT INFORMATION
  Report Type: Spontaneous
  Country: US (occurrence: US)
  Receive Date: 20130613
  Receipt Date: 20130801
  Transmission Date: 20140515
  Serious: Yes (Hospitalization, Other)
  Sender: FDA-Public Use
  Company Number: US-PFIZER INC-2013173537

PATIENT
  Age: 66 Year
  Sex: Male
  Weight: 64 kg

DRUGS (14)
  1. SUTENT [Suspect]
     Indication: PANCREATIC NEUROENDOCRINE TUMOUR METASTATIC
     Dosage: 12.5 MG, 1X/DAY (DAILY)
     Route: 048
  2. SUTENT [Suspect]
     Dosage: 25 MG, 1X/DAY (1 WEEK)
     Route: 048
  3. SUTENT [Suspect]
     Dosage: 37.5 MG, 1X/DAY
     Route: 048
     Dates: start: 20130515
  4. NEXIUM [Concomitant]
     Indication: GASTROOESOPHAGEAL REFLUX DISEASE
     Dosage: UNK
  5. LOSARTAN [Concomitant]
     Dosage: UNK
  6. METOPROLOL [Concomitant]
     Dosage: UNK
  7. LANTUS [Concomitant]
     Dosage: UNK
  8. INSULIN [Concomitant]
     Dosage: UNK
  9. NOVOLOG [Concomitant]
     Indication: BLOOD GLUCOSE INCREASED
     Dosage: PRN, SLIDING SCALE
  10. TUMS [Concomitant]
     Dosage: UNK
  11. LORAZEPAM [Concomitant]
     Indication: SLEEP DISORDER
     Dosage: UNK
  12. AMBIEN [Concomitant]
     Indication: INSOMNIA
     Dosage: 10 MG, AT BEDTIME
     Route: 048
     Dates: start: 20130503
  13. MIRTAZAPINE [Concomitant]
     Dosage: 15 MG, 1X/DAY
     Route: 048
     Dates: start: 20130503
  14. OXYCODONE [Concomitant]
     Indication: PAIN
     Dosage: 5 MG, Q 4H PRN
     Route: 048
     Dates: start: 20130503

REACTIONS (24)
  - Vomiting [Unknown]
  - Hiccups [Unknown]
  - Stomatitis [Unknown]
  - Oral discomfort [Unknown]
  - Oesophageal pain [Unknown]
  - Urinary incontinence [Unknown]
  - Weight decreased [Unknown]
  - Brain oedema [Unknown]
  - Immobile [Unknown]
  - Malaise [Unknown]
  - Headache [Recovered/Resolved]
  - Confusional state [Unknown]
  - Bed rest [Unknown]
  - Eye disorder [Recovered/Resolved]
  - Arthropod bite [Unknown]
  - Depression [Unknown]
  - Nausea [Recovered/Resolved]
  - Dyspepsia [Unknown]
  - Insomnia [Recovered/Resolved]
  - Rash [Recovered/Resolved]
  - Fatigue [Unknown]
  - Dermatitis allergic [Recovering/Resolving]
  - Insomnia [Unknown]
  - Dysphagia [Unknown]
